FAERS Safety Report 5445768-0 (Version None)
Quarter: 2007Q3

REPORT INFORMATION
  Report Type: 
  Country: None (occurrence: None)
  Receive Date: 20070830
  Receipt Date: 20070820
  Transmission Date: 20080115
  Serious: Yes (Other)
  Sender: FDA-Public Use
  Company Number: CHNY2007CA02635

PATIENT
  Age: 81 Year
  Sex: Male

DRUGS (9)
  1. ACETYLSALICYLIC ACID (NCH)(ACETYLSALICYLIC ACID) UNKNOWN [Suspect]
  2. LISINOPRIL [Suspect]
     Dosage: 2.5 MG, QD
  3. METOPROLOL TARTRATE [Suspect]
  4. WARFRIN(WARFARIN) [Suspect]
  5. FUROSEMIDE [Suspect]
  6. ERYTHROPOIETIN(ERYTHROPOIETIN) [Suspect]
  7. ALLOPURINOL [Suspect]
  8. CLONAZEPAM [Concomitant]
  9. IRON(IRON) [Concomitant]

REACTIONS (5)
  - ABDOMINAL PAIN [None]
  - DIARRHOEA [None]
  - EYE OPERATION [None]
  - HAEMODIALYSIS-INDUCED SYMPTOM [None]
  - HYPOTENSION [None]
